FAERS Safety Report 5121628-X (Version None)
Quarter: 2006Q4

REPORT INFORMATION
  Report Type: 
  Country: None (occurrence: None)
  Receive Date: 20061003
  Receipt Date: 20060919
  Transmission Date: 20070319
  Serious: Yes (Hospitalization)
  Sender: FDA-Public Use
  Company Number: 2006116744

PATIENT
  Age: 43 Year
  Sex: Male

DRUGS (8)
  1. ZYRTEC [Suspect]
  2. MORPHINE [Suspect]
     Dates: start: 20060321
  3. RAPIFEN                                 (ALFENTANIL HYDROCHLORIDE) [Suspect]
     Indication: SENSORY DISTURBANCE
     Dosage: 1 MG, INTRAVENOUS
     Route: 042
     Dates: start: 20060321
  4. PROPOFOL [Suspect]
     Indication: SENSORY DISTURBANCE
     Dates: start: 20060321, end: 20060321
  5. MIDAZOLAM HYDROCHLORIDE [Concomitant]
  6. COPHENYLCAINE [Concomitant]
  7. SEVOFLURANE [Concomitant]
  8. TERBINAFINE HCL [Concomitant]

REACTIONS (7)
  - DELAYED RECOVERY FROM ANAESTHESIA [None]
  - DEPRESSED LEVEL OF CONSCIOUSNESS [None]
  - FACIAL PALSY [None]
  - PCO2 INCREASED [None]
  - PO2 DECREASED [None]
  - SOMNOLENCE [None]
  - THERAPY NON-RESPONDER [None]
